FAERS Safety Report 23980787 (Version 6)
Quarter: 2025Q1

REPORT INFORMATION
  Report Type: Spontaneous
  Country: DE (occurrence: DE)
  Receive Date: 20240617
  Receipt Date: 20250121
  Transmission Date: 20250408
  Serious: Yes (Death, Life-Threatening, Hospitalization)
  Sender: NOVARTIS
  Company Number: DE-002147023-NVSC2024DE123385

PATIENT
  Sex: Female
  Weight: 61 kg

DRUGS (6)
  1. KISQALI [Suspect]
     Active Substance: RIBOCICLIB
     Indication: Hormone receptor positive HER2 negative breast cancer
     Route: 048
     Dates: start: 20220825, end: 20240325
  2. KISQALI [Suspect]
     Active Substance: RIBOCICLIB
     Indication: Breast cancer metastatic
  3. ABEMACICLIB [Concomitant]
     Active Substance: ABEMACICLIB
     Indication: Metastases to liver
     Dosage: 100 MG, QD (1-0-0)
     Route: 048
     Dates: start: 20240417
  4. ABEMACICLIB [Concomitant]
     Active Substance: ABEMACICLIB
     Indication: Breast cancer metastatic
  5. FULVESTRANT [Concomitant]
     Active Substance: FULVESTRANT
     Indication: Product used for unknown indication
     Dosage: 500 MG, Q4W
     Route: 065
     Dates: start: 202209, end: 202405
  6. ZOLEDRONIC ACID [Concomitant]
     Active Substance: ZOLEDRONIC ACID
     Indication: Product used for unknown indication
     Dosage: 4 MG, Q4W
     Route: 065
     Dates: start: 202209, end: 202405

REACTIONS (6)
  - Respiratory failure [Fatal]
  - Infection [Fatal]
  - Interstitial lung disease [Recovering/Resolving]
  - Sarcoidosis [Recovering/Resolving]
  - Pulmonary fibrosis [Recovering/Resolving]
  - Malaise [Unknown]

NARRATIVE: CASE EVENT DATE: 20240319
